FAERS Safety Report 8799573 (Version 1)
Quarter: 2012Q4

REPORT INFORMATION
  Report Type: Spontaneous
  Country: DK (occurrence: None)
  Receive Date: 20120914
  Receipt Date: 20120914
  Transmission Date: 20130627
  Serious: Yes (Hospitalization, Other)
  Sender: FDA-Public Use
  Company Number: 2012MA010825

PATIENT
  Age: 42 Year
  Sex: Female

DRUGS (8)
  1. LIDOCAINE HYDROCHLORIDE [Suspect]
     Indication: ANALGESIA
     Route: 008
  2. KADIAN [Suspect]
     Indication: ANALGESIA
     Route: 008
  3. KADIAN [Suspect]
     Indication: ABDOMINAL PAIN
     Route: 008
  4. OXYCODONE HCL [Suspect]
     Indication: ANALGESIA
  5. FENTANYL [Suspect]
     Indication: ANALGESIA
     Route: 008
  6. ADRENALINE [Suspect]
     Indication: ANALGESIA
     Route: 008
  7. ROPIVACAINE [Suspect]
     Indication: ANALGESIA
     Route: 008
  8. BUPIVACAINE [Suspect]
     Indication: ANALGESIA
     Route: 008

REACTIONS (7)
  - Abdominal pain [None]
  - Pain [None]
  - Allodynia [None]
  - Neuralgia [None]
  - Drug ineffective [None]
  - Hyperaesthesia [None]
  - Procedural pain [None]
